FAERS Safety Report 7632278-5 (Version None)
Quarter: 2011Q3

REPORT INFORMATION
  Report Type: 
  Country: None (occurrence: None)
  Receive Date: 20110725
  Receipt Date: 20100726
  Transmission Date: 20111222
  Serious: Yes (Hospitalization, Other)
  Sender: FDA-Public Use
  Company Number: US-BRISTOL-MYERS SQUIBB COMPANY-15190705

PATIENT
  Age: 58 Year
  Sex: Male
  Weight: 101 kg

DRUGS (5)
  1. SYNTHROID [Concomitant]
  2. LIPITOR [Concomitant]
  3. WARFARIN SODIUM [Suspect]
     Indication: ATRIAL FIBRILLATION
     Dosage: 5MG ALTERNATING WITH 2.5MG EVERY DAY
     Dates: start: 20100526
  4. QUINAPRIL HCL [Concomitant]
  5. METOPROLOL TARTRATE [Concomitant]

REACTIONS (2)
  - CEREBROVASCULAR ACCIDENT [None]
  - INTERNATIONAL NORMALISED RATIO FLUCTUATION [None]
